FAERS Safety Report 18287098 (Version 4)
Quarter: 2022Q1

REPORT INFORMATION
  Report Type: Report from Study
  Country: IE (occurrence: None)
  Receive Date: 20200921
  Receipt Date: 20220329
  Transmission Date: 20220424
  Serious: Yes (Other)
  Sender: FDA-Public Use
  Company Number: IE-MERCK HEALTHCARE KGAA-9186367

PATIENT
  Sex: Male

DRUGS (4)
  1. MAVENCLAD [Suspect]
     Active Substance: CLADRIBINE
     Indication: Relapsing-remitting multiple sclerosis
     Dosage: YEAR ONE WEEK ONE THERAPY: 2 DOSAGE FORMS ON DAYS 1 TO 2 AND ONE DOSAGE FORM ON DAYS 3 TO 5.
     Route: 048
     Dates: start: 20190624
  2. MAVENCLAD [Suspect]
     Active Substance: CLADRIBINE
     Dosage: YEAR ONE WEEK FIVE THERAPY: 2 DOSAGE FORMS ON DAYS 1 TO 2 AND ONE DOSAGE FORM ON DAYS 3 TO 5.
     Route: 048
     Dates: start: 20190722
  3. MAVENCLAD [Suspect]
     Active Substance: CLADRIBINE
     Dosage: YEAR TWO WEEK ONE THERAPY: 2 DOSAGE FORMS ON DAYS 1 TO 2 AND ONE DOSAGE FORM ON DAYS 3 TO 5.
     Route: 048
     Dates: start: 20200907
  4. MAVENCLAD [Suspect]
     Active Substance: CLADRIBINE
     Dosage: YEAR TWO WEEK FIVE THERAPY: TWO DOSAGE FORMS ON DAYS 1 TO 2 AND ONE DOSAGE FORM ON DAYS 3 TO 5.
     Route: 048
     Dates: start: 20201012

REACTIONS (4)
  - Pulmonary mass [Not Recovered/Not Resolved]
  - Condition aggravated [Not Recovered/Not Resolved]
  - Chest discomfort [Not Recovered/Not Resolved]
  - Productive cough [Not Recovered/Not Resolved]
